FAERS Safety Report 16705588 (Version 1)
Quarter: 2019Q4

REPORT INFORMATION
  Report Type: Spontaneous
  Country: US (occurrence: US)
  Receive Date: 20190814
  Receipt Date: 20190814
  Transmission Date: 20200122
  Serious: No
  Sender: FDA-Public Use
  Company Number: None

PATIENT
  Age: 53 Year
  Sex: Female
  Weight: 54 kg

DRUGS (1)
  1. CVS HEALTH EXTRA STRENGTH LUBRICANT GEL DROPS [CARBOXYMETHYLCELLULOSE SODIUM] [Suspect]
     Active Substance: CARBOXYMETHYLCELLULOSE SODIUM
     Indication: DRY EYE
     Dosage: ?          QUANTITY:0.5 OUNCE(S);?
     Route: 047
     Dates: start: 20180801, end: 20190712

REACTIONS (3)
  - Instillation site reaction [None]
  - Giant papillary conjunctivitis [None]
  - Chalazion [None]

NARRATIVE: CASE EVENT DATE: 20190113
